FAERS Safety Report 25958275 (Version 1)
Quarter: 2025Q4

REPORT INFORMATION
  Report Type: Spontaneous
  Country: US (occurrence: US)
  Receive Date: 20251024
  Receipt Date: 20251024
  Transmission Date: 20260118
  Serious: Yes (Other)
  Sender: ASTELLAS
  Company Number: US-PFIZER INC-202500004808

PATIENT
  Age: 69 Year
  Sex: Male

DRUGS (5)
  1. ENFORTUMAB VEDOTIN [Suspect]
     Active Substance: ENFORTUMAB VEDOTIN
     Indication: Transitional cell carcinoma metastatic
     Dosage: FOURTH CYCLE OF EV WAS SUBSEQUENTLY HELD
     Route: 065
  2. ENFORTUMAB VEDOTIN [Suspect]
     Active Substance: ENFORTUMAB VEDOTIN
     Dosage: RE-CHALLENGED WITH DOSE-REDUCED
     Route: 065
  3. ENFORTUMAB VEDOTIN [Suspect]
     Active Substance: ENFORTUMAB VEDOTIN
     Dosage: SEVENTH CYCLE (REDUCED DOSE)
     Route: 065
  4. ENFORTUMAB VEDOTIN [Suspect]
     Active Substance: ENFORTUMAB VEDOTIN
     Dosage: 10TH CYCLE (REDUCED DOSE)
     Route: 065
  5. PEMBROLIZUMAB [Suspect]
     Active Substance: PEMBROLIZUMAB
     Indication: Transitional cell carcinoma metastatic
     Route: 065

REACTIONS (2)
  - Drug eruption [Recovering/Resolving]
  - Intertrigo [Recovering/Resolving]
